FAERS Safety Report 24687126 (Version 1)
Quarter: 2024Q4

REPORT INFORMATION
  Report Type: Spontaneous
  Country: US (occurrence: US)
  Receive Date: 20241202
  Receipt Date: 20241202
  Transmission Date: 20250115
  Serious: Yes (Life-Threatening, Hospitalization)
  Sender: BAYER HEALTHCARE LLC
  Company Number: US-MLMSERVICE-20241115-PI258693-00033-1

PATIENT
  Age: 59 Year
  Sex: Female

DRUGS (3)
  1. ASPIRIN [Suspect]
     Active Substance: ASPIRIN
     Dosage: EMPTY BOTTLE
  2. QUETIAPINE [Concomitant]
     Active Substance: QUETIAPINE
     Indication: Major depression
  3. SERTRALINE [Concomitant]
     Active Substance: SERTRALINE HYDROCHLORIDE
     Indication: Major depression

REACTIONS (6)
  - Cardio-respiratory arrest [Unknown]
  - Acute kidney injury [Unknown]
  - Brain oedema [Unknown]
  - Respiratory acidosis [Unknown]
  - Toxicity to various agents [Unknown]
  - Distributive shock [Unknown]
